FAERS Safety Report 19530640 (Version 1)
Quarter: 2021Q3

REPORT INFORMATION
  Report Type: Spontaneous
  Country: GB (occurrence: GB)
  Receive Date: 20210713
  Receipt Date: 20210713
  Transmission Date: 20211014
  Serious: Yes (Disabling)
  Sender: FDA-Public Use
  Company Number: GB-B.I. PHARMACEUTICALS,INC./RIDGEFIELD-2021-BI-114647

PATIENT
  Age: 79 Year
  Sex: Male
  Weight: 103 kg

DRUGS (11)
  1. COCODAMOL [Concomitant]
     Active Substance: ACETAMINOPHEN\CODEINE PHOSPHATE
     Indication: ILL-DEFINED DISORDER
     Dosage: TAKE TWO 4 TIMES/DAY
     Dates: start: 20210524, end: 20210607
  2. LINAGLIPTIN [Concomitant]
     Active Substance: LINAGLIPTIN
     Indication: ILL-DEFINED DISORDER
     Dosage: TAKE ONE DAILY (FOR DIABETES)
     Dates: start: 20210615, end: 20210625
  3. LANSOPRAZOLE. [Concomitant]
     Active Substance: LANSOPRAZOLE
     Indication: ILL-DEFINED DISORDER
     Dosage: TAKE ONE DAILY (FOR DYSPESIA AND REFLUX)
     Dates: start: 20200720
  4. BENDROFLUMETHIAZIDE [Concomitant]
     Active Substance: BENDROFLUMETHIAZIDE
     Indication: ILL-DEFINED DISORDER
     Dosage: TAKE ONE EACH MORNING
     Dates: start: 20200911
  5. PIROXICAM. [Concomitant]
     Active Substance: PIROXICAM
     Indication: ILL-DEFINED DISORDER
     Dosage: APPLY TO THE AFFECTED AREA(S) THREE OR FOUR TIM...
     Dates: start: 20210603, end: 20210703
  6. SIMVASTATIN. [Concomitant]
     Active Substance: SIMVASTATIN
     Indication: ILL-DEFINED DISORDER
     Dosage: TAKE ONE IN THE EVENING (FOR CHOLESTEROL)
     Dates: start: 20200720
  7. ATENOLOL. [Concomitant]
     Active Substance: ATENOLOL
     Indication: ILL-DEFINED DISORDER
     Dosage: TAKE ONE EACH MORNING
     Dates: start: 20200720
  8. TILDIEM [Concomitant]
     Active Substance: DILTIAZEM HYDROCHLORIDE
     Indication: ILL-DEFINED DISORDER
     Dosage: TAKE ONE DAILY
     Dates: start: 20200720
  9. WARFARIN SODIUM. [Concomitant]
     Active Substance: WARFARIN SODIUM
     Indication: ILL-DEFINED DISORDER
     Dosage: TAKE AS DIRECTED BY INR CLINIC (FOR BLOOD THINN...
     Dates: start: 20190306
  10. TRAJENTA [Suspect]
     Active Substance: LINAGLIPTIN
     Indication: ILL-DEFINED DISORDER
     Dates: start: 20210625
  11. DOXAZOSIN [Concomitant]
     Active Substance: DOXAZOSIN MESYLATE
     Indication: ILL-DEFINED DISORDER
     Dosage: 1 TAB BD
     Dates: start: 20200720

REACTIONS (3)
  - Nausea [Recovering/Resolving]
  - Polyuria [Recovering/Resolving]
  - Paraesthesia [Recovering/Resolving]

NARRATIVE: CASE EVENT DATE: 20210709
